FAERS Safety Report 4875632-7 (Version None)
Quarter: 2005Q4

REPORT INFORMATION
  Report Type: 
  Country: None (occurrence: None)
  Receive Date: 20051223
  Receipt Date: 20051128
  Transmission Date: 20060501
  Serious: Yes (Hospitalization)
  Sender: FDA-Public Use
  Company Number: 05P-163-0301495-00

PATIENT
  Age: 67 Year
  Sex: Female
  Weight: 95 kg

DRUGS (6)
  1. HUMIRA [Suspect]
     Indication: RHEUMATOID ARTHRITIS
     Dosage: 40 MG, 1 IN 2 WK, SUBCUTANEOUS
     Route: 058
     Dates: start: 20030101
  2. VALSARTAN [Concomitant]
  3. LEVOTHYROXINE SODIUM [Concomitant]
  4. METOPROLOL TARTRATE [Concomitant]
  5. TYLENOL (CAPLET) [Concomitant]
  6. CYANOCOBALAMIN [Concomitant]

REACTIONS (5)
  - ARTHRITIS [None]
  - BRONCHITIS [None]
  - MYOCARDIAL INFARCTION [None]
  - PALPITATIONS [None]
  - PNEUMONIA [None]
